FAERS Safety Report 6329525-9 (Version None)
Quarter: 2009Q3

REPORT INFORMATION
  Report Type: 
  Country: None (occurrence: None)
  Receive Date: 20090826
  Receipt Date: 20090819
  Transmission Date: 20100115
  Serious: Yes (Other)
  Sender: FDA-Public Use
  Company Number: US-ELI_LILLY_AND_COMPANY-US200908004350

PATIENT
  Age: 79 Year
  Sex: Female

DRUGS (2)
  1. HUMULIN N [Suspect]
  2. TRAVATAN [Concomitant]
     Indication: ABNORMAL SENSATION IN EYE

REACTIONS (4)
  - CATARACT [None]
  - EYE HAEMORRHAGE [None]
  - INCORRECT DOSE ADMINISTERED [None]
  - VISUAL ACUITY REDUCED [None]
